FAERS Safety Report 7820143-X (Version None)
Quarter: 2011Q4

REPORT INFORMATION
  Report Type: 
  Country: None (occurrence: None)
  Receive Date: 20111018
  Receipt Date: 20111014
  Transmission Date: 20120403
  Serious: Yes (Other)
  Sender: FDA-Public Use
  Company Number: US-PFIZER INC-2011246899

PATIENT
  Sex: Female
  Weight: 83.9 kg

DRUGS (3)
  1. PREMARIN [Suspect]
     Indication: OESTROGEN REPLACEMENT THERAPY
  2. PREMARIN [Suspect]
     Indication: HYSTERECTOMY
     Dosage: UNK, 1X/DAY
     Route: 048
  3. PRILOSEC [Concomitant]
     Dosage: UNK

REACTIONS (5)
  - HOT FLUSH [None]
  - SLEEP DISORDER [None]
  - CHEST PAIN [None]
  - FEELING ABNORMAL [None]
  - DRUG INEFFECTIVE [None]
